FAERS Safety Report 8509753-4 (Version None)
Quarter: 2012Q3

REPORT INFORMATION
  Report Type: 
  Country: None (occurrence: None)
  Receive Date: 20120713
  Receipt Date: 20120309
  Transmission Date: 20120928
  Serious: Yes (Hospitalization)
  Sender: FDA-Public Use
  Company Number: HU-BAXTER-2012BH007199

PATIENT
  Age: 71 Year
  Sex: Male

DRUGS (6)
  1. DIANEAL LOW CALCIUM W/ DEXTROSE 1.5% [Suspect]
     Route: 033
     Dates: start: 20090423, end: 20110401
  2. INSULIN [Concomitant]
     Route: 065
  3. DIANEAL LOW CALCIUM W/ DEXTROSE 1.5% [Suspect]
     Route: 033
     Dates: start: 20090423, end: 20110401
  4. IRON [Concomitant]
     Route: 042
  5. DIANEAL [Suspect]
     Route: 033
     Dates: start: 20110401
  6. VITAMIN D [Concomitant]
     Route: 065

REACTIONS (1)
  - ANAEMIA [None]
